FAERS Safety Report 16172243 (Version 1)
Quarter: 2019Q2

REPORT INFORMATION
  Report Type: Other
  Country: FR (occurrence: FR)
  Receive Date: 20190409
  Receipt Date: 20190409
  Transmission Date: 20190711
  Serious: Yes (Other)
  Sender: FDA-Public Use
  Company Number: FR-EMCURE PHARMACEUTICALS LTD-2019-EPL-0167

PATIENT
  Age: 63 Year
  Sex: Male

DRUGS (6)
  1. VALACICLOVIR [Concomitant]
     Active Substance: VALACYCLOVIR HYDROCHLORIDE
  2. PANTOPRAZOLE [Concomitant]
     Active Substance: PANTOPRAZOLE
  3. APREPITANT. [Concomitant]
     Active Substance: APREPITANT
  4. PENTAMIDINE ISETHIONATE. [Suspect]
     Active Substance: PENTAMIDINE ISETHIONATE
     Indication: PRODUCT USED FOR UNKNOWN INDICATION
     Dosage: UNK
     Route: 041
     Dates: start: 20190301, end: 20190301
  5. BICNU [Suspect]
     Active Substance: CARMUSTINE
     Indication: LYMPHOMA
     Dosage: 300 MILLIGRAM/SQ. METER
     Route: 051
     Dates: start: 20190301, end: 20190301
  6. ONDANSETRON [Concomitant]
     Active Substance: ONDANSETRON

REACTIONS (4)
  - Pain [Recovered/Resolved]
  - Erythema [Recovering/Resolving]
  - Conjunctivitis [Recovered/Resolved]
  - Hot flush [Recovered/Resolved]

NARRATIVE: CASE EVENT DATE: 20190301
